FAERS Safety Report 6759684-5 (Version None)
Quarter: 2010Q2

REPORT INFORMATION
  Report Type: 
  Country: None (occurrence: None)
  Receive Date: 20100608
  Receipt Date: 20100602
  Transmission Date: 20101027
  Serious: Yes (Other)
  Sender: FDA-Public Use
  Company Number: US-ASTRAZENECA-2006UW03814

PATIENT
  Age: 17833 Day
  Sex: Male
  Weight: 86.2 kg

DRUGS (17)
  1. SEROQUEL [Suspect]
     Indication: BIPOLAR DISORDER
     Dosage: 100-300 MG
     Route: 048
     Dates: start: 20041019
  2. SEROQUEL [Suspect]
     Route: 048
     Dates: start: 20040101, end: 20040101
  3. GEMFIBROZIL [Concomitant]
  4. ATORVASTATIN [Concomitant]
  5. METFORMIN [Concomitant]
  6. METOPROLOL TARTRATE [Concomitant]
  7. AMBIEN [Concomitant]
  8. LEXAPRO [Concomitant]
  9. LUNESTA [Concomitant]
  10. ENALAPRIL [Concomitant]
  11. PLAVIX [Concomitant]
  12. ISOSORBIDE [Concomitant]
  13. AMIODARONE HYDROCHLORIDE [Concomitant]
  14. MORPHINE SULFATE [Concomitant]
  15. GLIPIZIDE [Concomitant]
  16. NORVASC [Concomitant]
  17. CONCERTA [Concomitant]

REACTIONS (3)
  - DIABETIC FOOT [None]
  - SOMNOLENCE [None]
  - TYPE 2 DIABETES MELLITUS [None]
